FAERS Safety Report 8612651-9 (Version None)
Quarter: 2012Q3

REPORT INFORMATION
  Report Type: 
  Country: None (occurrence: None)
  Receive Date: 20120822
  Receipt Date: 20110922
  Transmission Date: 20120928
  Serious: No
  Sender: FDA-Public Use
  Company Number: US-ASTRAZENECA-2011SE56909

PATIENT
  Age: 66 Year
  Sex: Female
  Weight: 68 kg

DRUGS (4)
  1. SYMBICORT [Suspect]
     Indication: CHRONIC OBSTRUCTIVE PULMONARY DISEASE
     Dosage: TOTAL DAILY DOSE 160 MCG, BID
     Route: 055
     Dates: start: 20110501
  2. SYMBICORT [Suspect]
     Indication: ASTHMA
     Dosage: TOTAL DAILY DOSE 160 MCG, BID
     Route: 055
     Dates: start: 20110501
  3. COMBAVENT [Concomitant]
     Indication: DYSPNOEA
  4. SIMETICONE [Concomitant]
     Indication: ABDOMINAL DISTENSION

REACTIONS (4)
  - HAEMORRHAGE SUBCUTANEOUS [None]
  - FLATULENCE [None]
  - OEDEMA PERIPHERAL [None]
  - ABDOMINAL DISTENSION [None]
